FAERS Safety Report 22003526 (Version 12)
Quarter: 2025Q2

REPORT INFORMATION
  Report Type: Spontaneous
  Country: DE (occurrence: DE)
  Receive Date: 20230217
  Receipt Date: 20250517
  Transmission Date: 20250716
  Serious: Yes (Death, Life-Threatening, Hospitalization, Congenital Anomaly, Other)
  Sender: AUROBINDO
  Company Number: DE-JNJFOC-20230164704

PATIENT
  Age: 72 Year
  Sex: Male
  Weight: 65 kg

DRUGS (32)
  1. BORTEZOMIB [Suspect]
     Active Substance: BORTEZOMIB
     Indication: Plasma cell myeloma
     Route: 058
     Dates: start: 20221117
  2. BORTEZOMIB [Suspect]
     Active Substance: BORTEZOMIB
     Indication: Drug therapy
     Route: 058
     Dates: start: 20221228
  3. BORTEZOMIB [Suspect]
     Active Substance: BORTEZOMIB
     Route: 058
     Dates: start: 20230204
  4. BORTEZOMIB [Suspect]
     Active Substance: BORTEZOMIB
     Route: 058
     Dates: start: 20230224, end: 20230224
  5. BORTEZOMIB [Suspect]
     Active Substance: BORTEZOMIB
     Route: 058
     Dates: start: 20230228, end: 20230228
  6. DOXORUBICIN [Suspect]
     Active Substance: DOXORUBICIN
     Indication: Plasma cell myeloma
     Route: 065
     Dates: start: 20221229, end: 20221231
  7. DOXORUBICIN [Suspect]
     Active Substance: DOXORUBICIN
     Indication: Salvage therapy
     Route: 065
     Dates: start: 20221117
  8. CARFILZOMIB [Suspect]
     Active Substance: CARFILZOMIB
     Indication: Plasma cell myeloma
     Route: 065
  9. CYCLOPHOSPHAMIDE [Suspect]
     Active Substance: CYCLOPHOSPHAMIDE
     Indication: Plasma cell myeloma
     Route: 065
     Dates: start: 20221229, end: 20221231
  10. CYCLOPHOSPHAMIDE [Suspect]
     Active Substance: CYCLOPHOSPHAMIDE
     Indication: Salvage therapy
  11. DARATUMUMAB [Suspect]
     Active Substance: DARATUMUMAB
     Indication: Plasma cell myeloma
     Route: 042
     Dates: start: 20221117
  12. DARATUMUMAB [Suspect]
     Active Substance: DARATUMUMAB
     Indication: Drug therapy
     Route: 042
     Dates: start: 20221212
  13. DARATUMUMAB [Suspect]
     Active Substance: DARATUMUMAB
     Route: 042
     Dates: start: 20230204
  14. DARATUMUMAB [Suspect]
     Active Substance: DARATUMUMAB
     Route: 042
     Dates: start: 20230228, end: 20230228
  15. DARATUMUMAB [Suspect]
     Active Substance: DARATUMUMAB
     Route: 042
     Dates: start: 20230224, end: 20230224
  16. DARZALEX [Suspect]
     Active Substance: DARATUMUMAB
     Indication: Plasma cell myeloma
     Route: 042
     Dates: start: 20221117
  17. DARZALEX [Suspect]
     Active Substance: DARATUMUMAB
     Indication: Drug therapy
     Route: 042
     Dates: start: 20221212
  18. DARZALEX [Suspect]
     Active Substance: DARATUMUMAB
     Route: 042
     Dates: start: 20230204
  19. DARZALEX [Suspect]
     Active Substance: DARATUMUMAB
     Route: 042
     Dates: start: 20230228, end: 20230228
  20. DARZALEX [Suspect]
     Active Substance: DARATUMUMAB
     Route: 042
     Dates: start: 20230224, end: 20230224
  21. DEXAMETHASONE [Suspect]
     Active Substance: DEXAMETHASONE
     Indication: Sepsis
     Route: 065
     Dates: start: 20230320, end: 20230320
  22. DEXAMETHASONE [Suspect]
     Active Substance: DEXAMETHASONE
     Route: 065
     Dates: start: 20221117
  23. ETOPOSIDE [Suspect]
     Active Substance: ETOPOSIDE
     Indication: Plasma cell myeloma
     Route: 065
  24. MELPHALAN [Suspect]
     Active Substance: MELPHALAN
     Indication: Overdose
     Route: 042
     Dates: start: 20230310, end: 20230311
  25. POMALIDOMIDE [Suspect]
     Active Substance: POMALIDOMIDE
     Indication: Product used for unknown indication
     Route: 065
     Dates: start: 20221117
  26. TECLISTAMAB [Suspect]
     Active Substance: TECLISTAMAB
     Indication: Product used for unknown indication
     Route: 065
  27. THALIDOMIDE [Suspect]
     Active Substance: THALIDOMIDE
     Indication: Product used for unknown indication
     Route: 065
  28. ACYCLOVIR [Concomitant]
     Active Substance: ACYCLOVIR
     Indication: Sepsis
     Route: 042
     Dates: start: 20230320, end: 20230322
  29. MEROPENEM [Concomitant]
     Active Substance: MEROPENEM
     Indication: Bacterial infection
     Route: 042
     Dates: start: 20230321, end: 20230322
  30. MEROPENEM [Concomitant]
     Active Substance: MEROPENEM
     Indication: Sepsis
  31. PIPERACILLIN [Concomitant]
     Active Substance: PIPERACILLIN
     Indication: Sepsis
     Route: 042
     Dates: start: 20230320, end: 20230321
  32. TAZOBACTAM [Concomitant]
     Active Substance: TAZOBACTAM
     Indication: Sepsis
     Route: 042
     Dates: start: 20230320, end: 20230321

REACTIONS (18)
  - Sepsis [Fatal]
  - Bacterial sepsis [Fatal]
  - Congenital aplasia [Fatal]
  - Bone marrow failure [Fatal]
  - Multiple organ dysfunction syndrome [Fatal]
  - Device related sepsis [Recovered/Resolved]
  - Febrile bone marrow aplasia [Recovered/Resolved]
  - General physical health deterioration [Unknown]
  - Pneumonia [Unknown]
  - Pyrexia [Recovered/Resolved]
  - Depressed level of consciousness [Unknown]
  - Pulmonary oedema [Recovered/Resolved]
  - Renal failure [Not Recovered/Not Resolved]
  - Disturbance in attention [Recovered/Resolved]
  - Hypertension [Not Recovered/Not Resolved]
  - Tachycardia [Recovered/Resolved]
  - Tachypnoea [Recovered/Resolved]
  - Product use in unapproved indication [Recovered/Resolved]

NARRATIVE: CASE EVENT DATE: 20221218
